FAERS Safety Report 5536635-2 (Version None)
Quarter: 2007Q4

REPORT INFORMATION
  Report Type: 
  Country: None (occurrence: None)
  Receive Date: 20071206
  Receipt Date: 20070803
  Transmission Date: 20080405
  Serious: Yes (Other)
  Sender: FDA-Public Use
  Company Number: US-AMGEN-KDL230764

PATIENT
  Sex: Male
  Weight: 81.7 kg

DRUGS (1)
  1. ENBREL [Suspect]
     Indication: RHEUMATOID ARTHRITIS
     Route: 058
     Dates: start: 20070406

REACTIONS (6)
  - ARTHRALGIA [None]
  - DEEP VEIN THROMBOSIS [None]
  - DYSPNOEA [None]
  - HYPERSENSITIVITY [None]
  - MYALGIA [None]
  - PULMONARY EMBOLISM [None]
